FAERS Safety Report 9289130 (Version 1)
Quarter: 2013Q2

REPORT INFORMATION
  Report Type: Spontaneous
  Country: CZ (occurrence: CZ)
  Receive Date: 20130514
  Receipt Date: 20130514
  Transmission Date: 20140414
  Serious: Yes (Hospitalization)
  Sender: FDA-Public Use
  Company Number: PHHY2013CZ047580

PATIENT
  Age: 47 Year
  Sex: Female

DRUGS (3)
  1. VENLAFAXINE SANDOZ [Suspect]
     Indication: DEPRESSION
     Dosage: 75 MG, DAILY
     Dates: start: 201104
  2. MIRTAZAPINE [Suspect]
  3. AVONEX [Suspect]
     Indication: MULTIPLE SCLEROSIS
     Dosage: 30 UG, QW
     Route: 030
     Dates: start: 201104, end: 20120830

REACTIONS (4)
  - Hepatitis acute [Recovered/Resolved]
  - Jaundice [Recovered/Resolved]
  - Hepatic enzyme increased [Recovered/Resolved]
  - Hepatitis toxic [None]
